FAERS Safety Report 4724883-0 (Version None)
Quarter: 2005Q3

REPORT INFORMATION
  Report Type: 
  Country: None (occurrence: None)
  Receive Date: 20050721
  Receipt Date: 20050719
  Transmission Date: 20060218
  Serious: Yes (Hospitalization)
  Sender: FDA-Public Use
  Company Number: A044-002-005681

PATIENT
  Age: 81 Year
  Sex: Female

DRUGS (9)
  1. ARICEPT [Suspect]
     Indication: DEMENTIA ALZHEIMER'S TYPE
     Dosage: ORAL
     Route: 048
  2. FUROSEMIDE [Suspect]
     Indication: HYPERTENSION
     Dosage: ORAL
     Route: 048
  3. VOLTAREN [Suspect]
     Indication: PAIN
     Dosage: ORAL
     Route: 048
     Dates: start: 20050525, end: 20050528
  4. LEVOTHYROXINE SODIUM [Suspect]
     Indication: HYPOTHYROIDISM
     Dosage: 50 MCG, ORAL
     Route: 048
  5. EBIXA (MEMANTINE) [Suspect]
     Indication: DEMENTIA ALZHEIMER'S TYPE
     Dosage: ORAL
     Route: 048
     Dates: start: 20050512, end: 20050528
  6. LOXEN LP (NICARDIPINE HYDROCHLORIDE) [Suspect]
     Indication: HYPERTENSION
     Dosage: 100 MG, ORAL
     Route: 048
  7. POTASSIUM CHLORIDE [Concomitant]
  8. EQUANIL [Concomitant]
  9. IMOVANE (ZOPICLONE) [Concomitant]

REACTIONS (14)
  - CONJUNCTIVITIS [None]
  - COUGH [None]
  - CREPITATIONS [None]
  - DYSPNOEA [None]
  - EYELID DISORDER [None]
  - GENERAL PHYSICAL HEALTH DETERIORATION [None]
  - JOINT SWELLING [None]
  - OEDEMA [None]
  - PULMONARY OEDEMA [None]
  - RALES [None]
  - RASH ERYTHEMATOUS [None]
  - RASH MACULAR [None]
  - RASH MACULO-PAPULAR [None]
  - VOMITING [None]
